FAERS Safety Report 9560381 (Version 2)
Quarter: 2013Q3

REPORT INFORMATION
  Report Type: Spontaneous
  Country: JP (occurrence: JP)
  Receive Date: 20130927
  Receipt Date: 20130927
  Transmission Date: 20140515
  Serious: Yes (Other)
  Sender: FDA-Public Use
  Company Number: JP-ASTRAZENECA-2013SE60389

PATIENT
  Age: 26064 Day
  Sex: Female
  Weight: 51 kg

DRUGS (8)
  1. NEXIUM [Suspect]
     Indication: GASTROOESOPHAGEAL REFLUX DISEASE
     Route: 048
     Dates: start: 20121225, end: 20130225
  2. NEXIUM [Suspect]
     Indication: GASTROOESOPHAGEAL REFLUX DISEASE
     Route: 048
     Dates: start: 20130226, end: 20130426
  3. NEXIUM [Suspect]
     Indication: GASTROOESOPHAGEAL REFLUX DISEASE
     Route: 048
     Dates: start: 20130426, end: 20130729
  4. OMEPRAL [Suspect]
     Indication: GASTROOESOPHAGEAL REFLUX DISEASE
     Route: 048
     Dates: start: 201110
  5. OMEPRAL [Suspect]
     Indication: GASTROOESOPHAGEAL REFLUX DISEASE
     Route: 048
     Dates: end: 20130225
  6. MUCOSTA [Suspect]
     Route: 048
  7. LOCHOL [Suspect]
     Route: 048
  8. DOGMATYL [Suspect]
     Route: 048

REACTIONS (3)
  - Laryngeal oedema [Recovering/Resolving]
  - Drug hypersensitivity [Unknown]
  - Therapy cessation [Unknown]
